FAERS Safety Report 8694162 (Version 3)
Quarter: 2013Q1

REPORT INFORMATION
  Report Type: Spontaneous
  Country: US (occurrence: None)
  Receive Date: 20120711
  Receipt Date: 20121026
  Transmission Date: 20140127
  Serious: Yes (Hospitalization)
  Sender: FDA-Public Use
  Company Number: 2012PROUSA01570

PATIENT
  Age: 64 Year
  Sex: Male
  Weight: 79.8 kg

DRUGS (9)
  1. PROVENGE [Suspect]
     Indication: PROSTATE CANCER METASTATIC
     Dosage: 250 ML, SINGLE, INTRAVENOUS
     Route: 042
     Dates: start: 20120220, end: 20120220
  2. ADDERALL [Concomitant]
  3. EFFEXOR [Concomitant]
  4. FLEXERIL [Concomitant]
  5. ZOLOFT [Concomitant]
  6. OXYCODONE HYDROCHLORIDE [Concomitant]
  7. PRILOSEC [Concomitant]
  8. PREDNISONE (PREDNISONE) [Concomitant]
  9. SERTRALINE HCL (SERTRALINE HYDROCHLORIDE) [Concomitant]

REACTIONS (21)
  - Decreased appetite [None]
  - Weight decreased [None]
  - Oedema peripheral [None]
  - Constipation [None]
  - Hypokalaemia [None]
  - Weight increased [None]
  - Microcytic anaemia [None]
  - Scrotal oedema [None]
  - Gastrointestinal hypomotility [None]
  - Intestinal mucosal hypertrophy [None]
  - Crohn^s disease [None]
  - Renal atrophy [None]
  - Inflammatory bowel disease [None]
  - Nausea [None]
  - Hypophagia [None]
  - Weight decreased [None]
  - Anaemia of chronic disease [None]
  - Renal failure acute [None]
  - Hydronephrosis [None]
  - Helicobacter gastritis [None]
  - Vomiting [None]
